FAERS Safety Report 4416383-2 (Version None)
Quarter: 2004Q3

REPORT INFORMATION
  Report Type: 
  Country: None (occurrence: None)
  Receive Date: 20040805
  Receipt Date: 20040722
  Transmission Date: 20050211
  Serious: Yes (Other)
  Sender: FDA-Public Use
  Company Number: DE-GLAXOSMITHKLINE-D0044321A

PATIENT
  Age: 72 Year
  Sex: Male

DRUGS (1)
  1. ALBUTEROL [Suspect]
     Indication: ASTHMA
     Route: 055

REACTIONS (6)
  - ANXIETY [None]
  - BACK PAIN [None]
  - DEVICE FAILURE [None]
  - DYSPNOEA [None]
  - INSOMNIA [None]
  - TACHYCARDIA [None]
